FAERS Safety Report 7583855-1 (Version None)
Quarter: 2011Q2

REPORT INFORMATION
  Report Type: 
  Country: None (occurrence: None)
  Receive Date: 20110630
  Receipt Date: 20110620
  Transmission Date: 20111010
  Serious: Yes (Other)
  Sender: FDA-Public Use
  Company Number: US-JNJFOC-20110609315

PATIENT
  Sex: Female
  Weight: 57.61 kg

DRUGS (2)
  1. REMICADE [Suspect]
     Indication: RHEUMATOID ARTHRITIS
     Route: 042
     Dates: start: 20080101
  2. METHOTREXATE [Concomitant]
     Indication: RHEUMATOID ARTHRITIS
     Dates: end: 20100101

REACTIONS (12)
  - READING DISORDER [None]
  - PRODUCT QUALITY ISSUE [None]
  - MACULAR DEGENERATION [None]
  - PAIN IN EXTREMITY [None]
  - CATARACT OPERATION COMPLICATION [None]
  - CONDITION AGGRAVATED [None]
  - CHRONIC OBSTRUCTIVE PULMONARY DISEASE [None]
  - BURNING SENSATION [None]
  - DRUG INEFFECTIVE [None]
  - CATARACT [None]
  - RHEUMATOID NODULE [None]
  - BLADDER PROLAPSE [None]
